FAERS Safety Report 6617800-X (Version None)
Quarter: 2010Q1

REPORT INFORMATION
  Report Type: 
  Country: None (occurrence: None)
  Receive Date: 20100302
  Receipt Date: 20100216
  Transmission Date: 20100710
  Serious: Yes (Other)
  Sender: FDA-Public Use
  Company Number: 20100068

PATIENT
  Age: 23 Year
  Sex: Female

DRUGS (1)
  1. VENOFER [Suspect]
     Dosage: 2 AMPULES OVER 5 MINUTES FREQUENCY + ROUTE MINUTES INJECTION NOS
     Dates: start: 20091101, end: 20091101

REACTIONS (4)
  - ANAPHYLACTOID REACTION [None]
  - BRADYCARDIA [None]
  - INCORRECT DRUG ADMINISTRATION RATE [None]
  - MUSCULOSKELETAL STIFFNESS [None]
